FAERS Safety Report 5818157-4 (Version None)
Quarter: 2008Q3

REPORT INFORMATION
  Report Type: 
  Country: None (occurrence: None)
  Receive Date: 20080722
  Receipt Date: 20071022
  Transmission Date: 20090109
  Serious: No
  Sender: FDA-Public Use
  Company Number: US-BAYER-US-2007-040835

PATIENT
  Age: 45 Year
  Sex: Female

DRUGS (1)
  1. MAGNEVIST [Suspect]
     Indication: NUCLEAR MAGNETIC RESONANCE IMAGING
     Dosage: UNIT DOSE: 12 ML
     Route: 042
     Dates: start: 20070828, end: 20070828

REACTIONS (4)
  - COUGH [None]
  - EYE IRRITATION [None]
  - LACRIMATION INCREASED [None]
  - THROAT IRRITATION [None]
